FAERS Safety Report 11879381 (Version 1)
Quarter: 2015Q4

REPORT INFORMATION
  Report Type: Spontaneous
  Country: DE (occurrence: DE)
  Receive Date: 20151230
  Receipt Date: 20151230
  Transmission Date: 20160305
  Serious: Yes (Life-Threatening)
  Sender: FDA-Public Use
  Company Number: DE-TEVA-620783GER

PATIENT
  Age: 71 Year
  Sex: Female
  Weight: 138 kg

DRUGS (7)
  1. DIOVAN [Suspect]
     Active Substance: VALSARTAN
     Indication: CARDIAC FAILURE
     Dosage: 1 DOSAGE FORMS DAILY;
     Route: 048
  2. SIMVASTATIN. [Suspect]
     Active Substance: SIMVASTATIN
     Indication: HYPERLIPIDAEMIA
     Dosage: 40 MILLIGRAM DAILY;
     Route: 048
  3. LERCANIDIPIN [Suspect]
     Active Substance: LERCANIDIPINE
     Indication: ATRIAL FIBRILLATION
     Dosage: 20 MILLIGRAM DAILY;
     Route: 048
  4. DEKRISTOL 20000 [Suspect]
     Active Substance: CHOLECALCIFEROL
     Indication: DIABETIC NEPHROPATHY
     Dosage: DAILY DOSE: 20 IU (=INTERNATIONAL UNIT) EVERY WEEK
  5. FALITHROM [Suspect]
     Active Substance: PHENPROCOUMON
     Indication: ATRIAL FIBRILLATION
     Dosage: ONE TO HALF A DAY
     Route: 048
  6. VALSARTAN COMP 160/25 [Suspect]
     Active Substance: HYDROCHLOROTHIAZIDE\VALSARTAN
     Indication: HYPERTENSION
     Dosage: 1 DOSAGE FORMS DAILY; 1 DF (=DOSAGE FORM): 160 MG VALSARTAN, 25 MG HYDROCHLOROTHIAZIDE
     Route: 048
  7. TOREM [Suspect]
     Active Substance: TORSEMIDE
     Indication: DIABETIC NEPHROPATHY
     Dosage: 20 MILLIGRAM DAILY;
     Route: 048

REACTIONS (5)
  - Cardiac failure [Not Recovered/Not Resolved]
  - Hepatic failure [Not Recovered/Not Resolved]
  - Toxic epidermal necrolysis [Not Recovered/Not Resolved]
  - Acute kidney injury [Not Recovered/Not Resolved]
  - Respiratory failure [Not Recovered/Not Resolved]

NARRATIVE: CASE EVENT DATE: 20151113
